FAERS Safety Report 11539773 (Version 1)
Quarter: 2015Q3

REPORT INFORMATION
  Report Type: Spontaneous
  Country: GB (occurrence: GB)
  Receive Date: 20150923
  Receipt Date: 20150923
  Transmission Date: 20151125
  Serious: Yes (Life-Threatening)
  Sender: FDA-Public Use
  Company Number: GB-TEVA-593586ACC

PATIENT
  Age: 71 Year
  Sex: Female
  Weight: 88 kg

DRUGS (17)
  1. GELASPAN [Suspect]
     Active Substance: CALCIUM CHLORIDE\MAGNESIUM CHLORIDE\POTASSIUM CHLORIDE\SODIUM ACETATE \SODIUM CHLORIDE\SUCCINYLATED GELATIN
  2. MIDAZOLAM [Suspect]
     Active Substance: MIDAZOLAM\MIDAZOLAM HYDROCHLORIDE
  3. TRANEXAMIC ACID. [Suspect]
     Active Substance: TRANEXAMIC ACID
  4. GENTAMICIN. [Suspect]
     Active Substance: GENTAMICIN
     Route: 065
  5. CARDIOPLEGIA [Suspect]
     Active Substance: CALCIUM CHLORIDE\MAGNESIUM CHLORIDE\POTASSIUM CHLORIDE\PROCAINE HYDROCHLORIDE\SODIUM CHLORIDE
  6. SYMBICORT [Concomitant]
     Active Substance: BUDESONIDE\FORMOTEROL FUMARATE DIHYDRATE
  7. LOSARTAN AND HYDROCHLOROTHIAZIDE [Concomitant]
     Active Substance: HYDROCHLOROTHIAZIDE\LOSARTAN POTASSIUM
  8. QUININE [Concomitant]
     Active Substance: QUININE
  9. ASPIRIN. [Concomitant]
     Active Substance: ASPIRIN
  10. LANSOPRAZOLE. [Concomitant]
     Active Substance: LANSOPRAZOLE
  11. PANCURONIUM [Suspect]
     Active Substance: PANCURONIUM
  12. SPIRIVA [Concomitant]
     Active Substance: TIOTROPIUM BROMIDE MONOHYDRATE
  13. FENTANYL. [Suspect]
     Active Substance: FENTANYL
     Route: 065
  14. FLUCLOXACILLIN [Suspect]
     Active Substance: FLUCLOXACILLIN
  15. PROPOFOL. [Suspect]
     Active Substance: PROPOFOL
  16. FELODIPINE. [Concomitant]
     Active Substance: FELODIPINE
  17. VENTOLIN [Concomitant]
     Active Substance: ALBUTEROL SULFATE

REACTIONS (2)
  - Hypotension [Recovered/Resolved]
  - Tachycardia [Recovered/Resolved]
